FAERS Safety Report 11700426 (Version 3)
Quarter: 2019Q4

REPORT INFORMATION
  Report Type: Spontaneous
  Country: JP (occurrence: JP)
  Receive Date: 20151105
  Receipt Date: 20191022
  Transmission Date: 20200122
  Serious: Yes (Hospitalization)
  Sender: FDA-Public Use
  Company Number: JP-TEVA-2015-JP-002198J

PATIENT
  Age: 33 Year
  Sex: Female

DRUGS (10)
  1. SAXIZON [Suspect]
     Active Substance: HYDROCORTISONE SODIUM SUCCINATE
     Dosage: 600 MILLIGRAM DAILY;
     Route: 042
     Dates: start: 20151024, end: 20151024
  2. SAXIZON [Suspect]
     Active Substance: HYDROCORTISONE SODIUM SUCCINATE
     Dosage: 400 MILLIGRAM DAILY;
     Route: 042
     Dates: start: 20151025, end: 20151025
  3. SAXIZON [Suspect]
     Active Substance: HYDROCORTISONE SODIUM SUCCINATE
     Dosage: 800 MILLIGRAM DAILY;
     Route: 042
     Dates: start: 20151023, end: 20151023
  4. SAXIZON [Suspect]
     Active Substance: HYDROCORTISONE SODIUM SUCCINATE
     Dosage: 800 MILLIGRAM DAILY;
     Route: 042
     Dates: start: 20151023, end: 20151023
  5. SAXIZON [Suspect]
     Active Substance: HYDROCORTISONE SODIUM SUCCINATE
     Indication: FACIAL PARALYSIS
     Dosage: 1000 MILLIGRAM DAILY;
     Route: 042
     Dates: start: 20151022, end: 20151022
  6. SAXIZON [Suspect]
     Active Substance: HYDROCORTISONE SODIUM SUCCINATE
     Indication: FACIAL PARALYSIS
     Dosage: 1000 MILLIGRAM DAILY;
     Route: 042
     Dates: start: 20151022, end: 20151022
  7. SAXIZON [Suspect]
     Active Substance: HYDROCORTISONE SODIUM SUCCINATE
     Dosage: 600 MILLIGRAM DAILY;
     Route: 042
     Dates: start: 20151024, end: 20151024
  8. SAXIZON [Suspect]
     Active Substance: HYDROCORTISONE SODIUM SUCCINATE
     Dosage: 400 MILLIGRAM DAILY;
     Route: 042
     Dates: start: 20151025, end: 20151025
  9. TAKEPRON [Concomitant]
     Active Substance: LANSOPRAZOLE
     Indication: PEPTIC ULCER
     Dosage: 15 MILLIGRAM DAILY;
     Route: 048
     Dates: start: 20151022, end: 20151025
  10. METHYCOBAL [Concomitant]
     Active Substance: METHYLCOBALAMIN
     Indication: FACIAL PARALYSIS
     Dosage: 1500 MICROGRAM DAILY;
     Route: 048
     Dates: start: 20151022, end: 20151025

REACTIONS (2)
  - Maternal exposure during pregnancy [Unknown]
  - Oligohydramnios [Not Recovered/Not Resolved]

NARRATIVE: CASE EVENT DATE: 20151025
